FAERS Safety Report 14101071 (Version 1)
Quarter: 2017Q4

REPORT INFORMATION
  Report Type: Spontaneous
  Country: JP (occurrence: JP)
  Receive Date: 20171018
  Receipt Date: 20171018
  Transmission Date: 20180321
  Serious: Yes (Death, Other)
  Sender: FDA-Public Use
  Company Number: JP-SUN PHARMACEUTICAL INDUSTRIES LTD-2017RR-151891

PATIENT
  Age: 70 Year
  Sex: Male

DRUGS (4)
  1. CARBOPLATIN. [Suspect]
     Active Substance: CARBOPLATIN
     Indication: NON-SMALL CELL LUNG CANCER
     Dosage: CYCLICAL
     Route: 065
  2. PEMETREXED. [Suspect]
     Active Substance: PEMETREXED
     Indication: NON-SMALL CELL LUNG CANCER
     Dosage: 500 MG/M2, UNK
     Route: 065
  3. GEMCITABINE [Suspect]
     Active Substance: GEMCITABINE\GEMCITABINE HYDROCHLORIDE
     Indication: NON-SMALL CELL LUNG CANCER
     Dosage: 1000 MG/M2, CYCLICAL
     Route: 065
  4. DOCETAXEL. [Suspect]
     Active Substance: DOCETAXEL
     Dosage: 60 MG/M2, CYCLICAL
     Route: 065

REACTIONS (2)
  - Disease progression [Fatal]
  - Pneumothorax [Recovering/Resolving]
